FAERS Safety Report 5971470-2 (Version None)
Quarter: 2008Q4

REPORT INFORMATION
  Report Type: 
  Country: None (occurrence: None)
  Receive Date: 20081201
  Receipt Date: 20081114
  Transmission Date: 20090506
  Serious: Yes (Other)
  Sender: FDA-Public Use
  Company Number: ES-CELGENEUS-144-21880-08110804

PATIENT
  Sex: Male

DRUGS (4)
  1. REVLIMID [Suspect]
     Indication: MULTIPLE MYELOMA
     Route: 048
     Dates: start: 20081001
  2. REVLIMID [Suspect]
     Indication: AMYLOIDOSIS
  3. DEXAMETHASONE [Concomitant]
     Indication: MULTIPLE MYELOMA
     Route: 065
     Dates: start: 20081001
  4. DEXAMETHASONE [Concomitant]
     Indication: AMYLOIDOSIS

REACTIONS (2)
  - HEPATITIS B [None]
  - TRANSAMINASES INCREASED [None]
